FAERS Safety Report 11914526 (Version 2)
Quarter: 2016Q1

REPORT INFORMATION
  Report Type: Spontaneous
  Country: JP (occurrence: JP)
  Receive Date: 20160113
  Receipt Date: 20160114
  Transmission Date: 20160526
  Serious: Yes (Other)
  Sender: FDA-Public Use
  Company Number: JP-JNJFOC-20160102994

PATIENT

DRUGS (4)
  1. GOLIMUMAB [Suspect]
     Active Substance: GOLIMUMAB
     Indication: RHEUMATOID ARTHRITIS
     Dosage: 83 PATIENTS RECEIVED GOLIMUMAB 50 MG EVERY 4 WEEKS FROM C GROUP WITH METHOTREXATE
     Route: 058
     Dates: start: 201109, end: 201305
  2. METHOTREXATE [Suspect]
     Active Substance: METHOTREXATE
     Indication: RHEUMATOID ARTHRITIS
     Dosage: GOLIMUMAB 50 MG/4 WEEK + METHOTREXATE DOSAGE 2-16 MG PER WEEK
     Route: 065
     Dates: start: 201109, end: 201305
  3. PREDNISOLONE. [Concomitant]
     Active Substance: PREDNISOLONE
     Route: 065
  4. GOLIMUMAB [Suspect]
     Active Substance: GOLIMUMAB
     Indication: RHEUMATOID ARTHRITIS
     Dosage: 32 PATIENTS RECEIVED GLM 100 MG/4 WEEKS (M GROUP)
     Route: 058
     Dates: start: 201109, end: 201305

REACTIONS (8)
  - Platelet count decreased [Unknown]
  - Pneumonia [Unknown]
  - Pruritus generalised [Unknown]
  - Herpes zoster [Unknown]
  - Gastric ulcer [Unknown]
  - Cell marker increased [Unknown]
  - Injection site reaction [Unknown]
  - Cough [Unknown]
